FAERS Safety Report 7034432-2 (Version None)
Quarter: 2010Q4

REPORT INFORMATION
  Report Type: 
  Country: None (occurrence: None)
  Receive Date: 20101008
  Receipt Date: 20100928
  Transmission Date: 20110411
  Serious: Yes (Hospitalization, Other)
  Sender: FDA-Public Use
  Company Number: PHHY2010CH64241

PATIENT
  Age: 80 Year
  Sex: Female

DRUGS (4)
  1. VOLTAREN [Suspect]
     Indication: NECK PAIN
     Dosage: 50 MG, PER DAY
     Route: 048
     Dates: start: 20090211, end: 20090226
  2. COAPROVEL [Concomitant]
     Dosage: 0.5 DF, PER DAY
  3. OMEZOLAN [Concomitant]
     Dosage: UNK
  4. CLARITIN [Concomitant]
     Dosage: 1 DF, PER DAY

REACTIONS (9)
  - ABDOMINAL PAIN UPPER [None]
  - DYSPNOEA [None]
  - FATIGUE [None]
  - GASTROINTESTINAL HAEMORRHAGE [None]
  - HAEMORRHAGIC ANAEMIA [None]
  - HIATUS HERNIA [None]
  - IRON DEFICIENCY ANAEMIA [None]
  - MELAENA [None]
  - REFLUX OESOPHAGITIS [None]
